FAERS Safety Report 20986183 (Version 1)
Quarter: 2022Q2

REPORT INFORMATION
  Report Type: Spontaneous
  Country: US (occurrence: None)
  Receive Date: 20220617
  Receipt Date: 20220617
  Transmission Date: 20220721
  Serious: Yes (Hospitalization)
  Sender: FDA-Public Use
  Company Number: None

PATIENT
  Age: 28 Year
  Sex: Male

DRUGS (6)
  1. OPSUMIT [Suspect]
     Active Substance: MACITENTAN
     Indication: Pulmonary arterial hypertension
     Dosage: FREQUENCY : DAILY;?
     Route: 048
     Dates: start: 20210203
  2. SILDENAFIL [Concomitant]
     Active Substance: SILDENAFIL
  3. ASPIRIN [Concomitant]
     Active Substance: ASPIRIN
  4. BUMETANIDE [Concomitant]
     Active Substance: BUMETANIDE
  5. ALLOPURINOL [Concomitant]
     Active Substance: ALLOPURINOL
  6. MAGNESIUM OXIDE [Concomitant]
     Active Substance: MAGNESIUM OXIDE

REACTIONS (4)
  - COVID-19 [None]
  - Peripheral swelling [None]
  - Dyspnoea [None]
  - Treatment noncompliance [None]

NARRATIVE: CASE EVENT DATE: 20220612
